FAERS Safety Report 5324378-X (Version None)
Quarter: 2007Q2

REPORT INFORMATION
  Report Type: 
  Country: None (occurrence: None)
  Receive Date: 20070509
  Receipt Date: 20070424
  Transmission Date: 20071010
  Serious: Yes (Life-Threatening)
  Sender: FDA-Public Use
  Company Number: S07-TUR-01904-01

PATIENT
  Age: 70 Year
  Sex: Female

DRUGS (5)
  1. EBIXA (MEMANTINE HYDROCHLORIDE) [Suspect]
     Indication: PARKINSON'S DISEASE
     Dosage: 15 MG QD PO
     Route: 048
     Dates: start: 20070406, end: 20070408
  2. EBIXA (MEMANTINE HYDROCHLORIDE) [Suspect]
     Indication: PARKINSON'S DISEASE
     Dosage: 5 MG QD PO
     Route: 048
     Dates: start: 20070323, end: 20070329
  3. EBIXA (MEMANTINE HYDROCHLORIDE) [Suspect]
     Indication: PARKINSON'S DISEASE
     Dosage: 5 MG BID PO
     Route: 048
     Dates: start: 20070330, end: 20070405
  4. AZILECT [Suspect]
     Indication: PARKINSON'S DISEASE
     Dosage: 1 MG QD PO
     Route: 048
     Dates: start: 20070323, end: 20070408
  5. CAPTOPRIL [Concomitant]

REACTIONS (5)
  - BLOOD PRESSURE INCREASED [None]
  - DYSPNOEA [None]
  - FLUSHING [None]
  - MALAISE [None]
  - MUSCULOSKELETAL STIFFNESS [None]
